FAERS Safety Report 4916972-2 (Version None)
Quarter: 2006Q1

REPORT INFORMATION
  Report Type: 
  Country: None (occurrence: None)
  Receive Date: 20060221
  Receipt Date: 20060210
  Transmission Date: 20060701
  Serious: Yes (Hospitalization, Other)
  Sender: FDA-Public Use
  Company Number: US-JNJFOC-20050105996

PATIENT
  Sex: Female
  Weight: 61.24 kg

DRUGS (5)
  1. REMICADE [Suspect]
     Route: 042
  2. REMICADE [Suspect]
     Indication: RHEUMATOID ARTHRITIS
     Route: 042
  3. METHOTREXATE [Concomitant]
  4. FOLIC ACID [Concomitant]
  5. FELDENE [Concomitant]

REACTIONS (18)
  - ANXIETY [None]
  - DEHYDRATION [None]
  - FEELING HOT AND COLD [None]
  - HYPERKERATOSIS [None]
  - INFECTION [None]
  - INSOMNIA [None]
  - KIDNEY RUPTURE [None]
  - MALAISE [None]
  - MOUNTAIN SICKNESS ACUTE [None]
  - NASOPHARYNGITIS [None]
  - NAUSEA [None]
  - NEPHROLITHIASIS [None]
  - PAIN [None]
  - PARAESTHESIA [None]
  - SINUSITIS [None]
  - THINKING ABNORMAL [None]
  - TONGUE DISCOLOURATION [None]
  - VISION BLURRED [None]
